FAERS Safety Report 5200478-X (Version None)
Quarter: 2006Q4

REPORT INFORMATION
  Report Type: 
  Country: None (occurrence: None)
  Receive Date: 20061016
  Receipt Date: 20060821
  Transmission Date: 20070319
  Serious: No
  Sender: FDA-Public Use
  Company Number: 2006SP003076

PATIENT
  Age: 74 Year
  Sex: Female
  Weight: 87.0906 kg

DRUGS (7)
  1. LUNESTA [Suspect]
     Indication: INSOMNIA
     Dosage: SEE IMAGE, ORAL
     Route: 048
     Dates: start: 20050101, end: 20050101
  2. LUNESTA [Suspect]
     Indication: INSOMNIA
     Dosage: SEE IMAGE, ORAL
     Route: 048
     Dates: start: 20060811, end: 20060819
  3. LUNESTA [Suspect]
     Indication: INSOMNIA
     Dosage: SEE IMAGE, ORAL
     Route: 048
     Dates: start: 20060820, end: 20060820
  4. INSULIN [Concomitant]
  5. PREDNISONE TAB [Concomitant]
  6. HYZAAR [Concomitant]
  7. TOPROL-XL [Concomitant]

REACTIONS (1)
  - INITIAL INSOMNIA [None]
